FAERS Safety Report 6419692-0 (Version None)
Quarter: 2009Q4

REPORT INFORMATION
  Report Type: 
  Country: None (occurrence: None)
  Receive Date: 20091029
  Receipt Date: 20091021
  Transmission Date: 20100525
  Serious: Yes (Life-Threatening)
  Sender: FDA-Public Use
  Company Number: B0598797A

PATIENT
  Sex: Female

DRUGS (4)
  1. PROPAFENONE HCL [Suspect]
     Indication: ATRIAL FIBRILLATION
     Dosage: 150MG TWICE PER DAY
     Route: 048
     Dates: start: 20090912, end: 20090926
  2. ALTEIS [Concomitant]
  3. PROPRANOLOL HYDROCHLORIDE [Concomitant]
  4. ACETYLSALICYLATE LYSINE [Concomitant]

REACTIONS (4)
  - ATRIAL FLUTTER [None]
  - MALAISE [None]
  - MUSCLE SPASMS [None]
  - VERTIGO [None]
